FAERS Safety Report 14566981 (Version 2)
Quarter: 2018Q2

REPORT INFORMATION
  Report Type: Report from Study
  Country: DE (occurrence: DE)
  Receive Date: 20180223
  Receipt Date: 20180626
  Transmission Date: 20180711
  Serious: Yes (Death, Hospitalization, Disabling, Other)
  Sender: FDA-Public Use
  Company Number: DE-JNJFOC-20180231375

PATIENT
  Age: 93 Year
  Sex: Female
  Weight: 54 kg

DRUGS (4)
  1. RIVAROXABAN [Suspect]
     Active Substance: RIVAROXABAN
     Indication: PRODUCT USED FOR UNKNOWN INDICATION
     Route: 048
  2. ASPIRIN. [Suspect]
     Active Substance: ASPIRIN
     Indication: PRODUCT USED FOR UNKNOWN INDICATION
     Route: 065
  3. PANTOPRAZOLE SODIUM. [Concomitant]
     Active Substance: PANTOPRAZOLE SODIUM
     Route: 065
  4. STEROFUNDIN [Concomitant]
     Active Substance: CALCIUM CHLORIDE\MAGNESIUM CHLORIDE\POTASSIUM CHLORIDE\SODIUM ACETATE\SODIUM CHLORIDE
     Route: 065

REACTIONS (9)
  - Disturbance in attention [Unknown]
  - Acute kidney injury [Fatal]
  - Sepsis [Fatal]
  - Infection [Unknown]
  - Myocardial infarction [Recovered/Resolved with Sequelae]
  - Death [Fatal]
  - Hypertension [Unknown]
  - Epilepsy [Unknown]
  - Troponin I increased [Unknown]

NARRATIVE: CASE EVENT DATE: 20170307
